FAERS Safety Report 9380599 (Version 1)
Quarter: 2013Q3

REPORT INFORMATION
  Report Type: Spontaneous
  Country: US (occurrence: US)
  Receive Date: 20130702
  Receipt Date: 20130702
  Transmission Date: 20140515
  Serious: No
  Sender: FDA-Public Use
  Company Number: US-PFIZER INC-2013194362

PATIENT
  Age: 79 Year
  Sex: Male
  Weight: 113.38 kg

DRUGS (5)
  1. LYRICA [Suspect]
     Indication: NEURALGIA
     Dosage: 50 MG, 2X/DAY
     Route: 048
     Dates: start: 201305
  2. LYRICA [Suspect]
     Indication: DIABETIC NEUROPATHY
  3. COUMADINE [Concomitant]
     Dosage: UNK
  4. METOPROLOL [Concomitant]
     Dosage: UNK
  5. DILTIAZEM [Concomitant]
     Dosage: UNK

REACTIONS (1)
  - Musculoskeletal chest pain [Unknown]
